FAERS Safety Report 18738406 (Version 1)
Quarter: 2021Q1

REPORT INFORMATION
  Report Type: Spontaneous
  Country: US (occurrence: US)
  Receive Date: 20210113
  Receipt Date: 20210113
  Transmission Date: 20210419
  Serious: Yes (Hospitalization, Other)
  Sender: FDA-Public Use
  Company Number: US-ROCHE-2747616

PATIENT
  Sex: Male

DRUGS (6)
  1. TRADJENTA [Concomitant]
     Active Substance: LINAGLIPTIN
  2. GLIMEPIRIDE. [Concomitant]
     Active Substance: GLIMEPIRIDE
  3. SIMVASTIN [Concomitant]
     Active Substance: SIMVASTATIN
  4. ESBRIET [Suspect]
     Active Substance: PIRFENIDONE
     Indication: IDIOPATHIC PULMONARY FIBROSIS
     Dosage: TAKE THREE TABLET BY MOUTH THREE TIMES A DAY WITH MEALS.
     Route: 048
  5. TOUJEO MAX [Concomitant]
     Active Substance: INSULIN GLARGINE
     Dosage: 300 UNIT
  6. ASPIRIN. [Concomitant]
     Active Substance: ASPIRIN

REACTIONS (3)
  - Loss of consciousness [Unknown]
  - Road traffic accident [Unknown]
  - Rib fracture [Unknown]
